FAERS Safety Report 4649989-6 (Version None)
Quarter: 2005Q2

REPORT INFORMATION
  Report Type: 
  Country: None (occurrence: None)
  Receive Date: 20050428
  Receipt Date: 20050415
  Transmission Date: 20051028
  Serious: Yes (Death)
  Sender: FDA-Public Use
  Company Number: 2005061560

PATIENT
  Age: 72 Year
  Sex: Female

DRUGS (6)
  1. BEXTRA [Suspect]
     Indication: UTERINE CANCER
     Dosage: 40 MG (40 MG, 1 IN 1 D), ORAL
     Route: 048
     Dates: start: 20050301, end: 20050301
  2. NIFEDIPINE [Concomitant]
  3. CAPTOPRIL [Concomitant]
  4. ISOSORBIDE MONONITRATE [Concomitant]
  5. ATENOLOL [Concomitant]
  6. FERROUS SULFATE TAB [Concomitant]

REACTIONS (1)
  - TACHYCARDIA [None]
